FAERS Safety Report 21046009 (Version 2)
Quarter: 2022Q3

REPORT INFORMATION
  Report Type: Spontaneous
  Country: US (occurrence: None)
  Receive Date: 20220706
  Receipt Date: 20220824
  Transmission Date: 20221026
  Serious: Yes (Other)
  Sender: FDA-Public Use
  Company Number: US-ROCHE-3091306

PATIENT

DRUGS (2)
  1. SOMATROPIN [Suspect]
     Active Substance: SOMATROPIN
     Indication: Product used for unknown indication
     Dosage: 5 MG/2 ML
     Route: 065
  2. SOMATROPIN [Suspect]
     Active Substance: SOMATROPIN

REACTIONS (3)
  - Device breakage [Unknown]
  - Product quality issue [Unknown]
  - No adverse event [Unknown]
